FAERS Safety Report 14878792 (Version 2)
Quarter: 2018Q3

REPORT INFORMATION
  Report Type: Report from Study
  Country: None (occurrence: AU)
  Receive Date: 20180511
  Receipt Date: 20180711
  Transmission Date: 20181010
  Serious: Yes (Other)
  Sender: FDA-Public Use
  Company Number: AU-ABBVIE-18S-008-2351190-00

PATIENT
  Age: 89 Year
  Sex: Male

DRUGS (4)
  1. CASODEX [Concomitant]
     Active Substance: BICALUTAMIDE
     Indication: PRODUCT USED FOR UNKNOWN INDICATION
  2. LUPRON DEPOT [Suspect]
     Active Substance: LEUPROLIDE ACETATE
     Indication: PROSTATE CANCER
     Route: 030
  3. SOLANE [Concomitant]
     Indication: BALANCE DISORDER
  4. SOLANE [Concomitant]
     Indication: POLYMYALGIA RHEUMATICA
     Route: 065

REACTIONS (4)
  - Polymyalgia rheumatica [Not Recovered/Not Resolved]
  - Eye haemorrhage [Recovered/Resolved]
  - Peripheral swelling [Recovering/Resolving]
  - Dizziness [Not Recovered/Not Resolved]

NARRATIVE: CASE EVENT DATE: 201803
